FAERS Safety Report 7598171-1 (Version None)
Quarter: 2011Q3

REPORT INFORMATION
  Report Type: 
  Country: None (occurrence: None)
  Receive Date: 20110708
  Receipt Date: 20110701
  Transmission Date: 20111222
  Serious: Yes (Death)
  Sender: FDA-Public Use
  Company Number: US-CELGENEUS-163-21880-11070213

PATIENT
  Sex: Female

DRUGS (9)
  1. METOPROLOL SUCCINATE [Concomitant]
     Route: 065
  2. TRAZODONE HCL [Concomitant]
     Route: 065
  3. REVLIMID [Suspect]
     Dosage: 25 MILLIGRAM
     Route: 048
     Dates: start: 20110517
  4. CALCIUM CARBONATE [Concomitant]
     Dosage: 500
     Route: 065
  5. ZANTAC [Concomitant]
     Route: 065
  6. DEXAMETHASONE [Concomitant]
     Route: 065
  7. FUROSEMIDE [Concomitant]
     Route: 065
  8. FENTANYL [Concomitant]
     Route: 065
  9. PROCHLORPERAZINE MALEATE [Concomitant]
     Route: 065

REACTIONS (1)
  - DEATH [None]
